FAERS Safety Report 14152089 (Version 3)
Quarter: 2017Q4

REPORT INFORMATION
  Report Type: Report from Study
  Country: FR (occurrence: FR)
  Receive Date: 20171102
  Receipt Date: 20171227
  Transmission Date: 20180321
  Serious: Yes (Death, Hospitalization)
  Sender: FDA-Public Use
  Company Number: FR-CELGENEUS-FRA-20171007213

PATIENT
  Age: 87 Year
  Sex: Male
  Weight: 56.6 kg

DRUGS (1)
  1. REVLIMID [Suspect]
     Active Substance: LENALIDOMIDE
     Indication: PLASMA CELL MYELOMA
     Route: 048
     Dates: start: 20140310, end: 20171012

REACTIONS (2)
  - Faecaloma [Recovered/Resolved with Sequelae]
  - General physical health deterioration [Fatal]

NARRATIVE: CASE EVENT DATE: 20171012
